FAERS Safety Report 14261730 (Version 1)
Quarter: 2017Q4

REPORT INFORMATION
  Report Type: Spontaneous
  Country: US (occurrence: US)
  Receive Date: 20171208
  Receipt Date: 20171208
  Transmission Date: 20180321
  Serious: Yes (Hospitalization, Other)
  Sender: FDA-Public Use
  Company Number: US-APOTEX-2017AP022615

PATIENT
  Age: 54 Year
  Sex: Female

DRUGS (1)
  1. CARBAMAZEPINE. [Suspect]
     Active Substance: CARBAMAZEPINE
     Indication: PRODUCT USED FOR UNKNOWN INDICATION
     Dosage: UNK
     Route: 065

REACTIONS (7)
  - Toxicity to various agents [Unknown]
  - Unresponsive to stimuli [Recovered/Resolved]
  - Electroencephalogram abnormal [Recovered/Resolved]
  - Overdose [Unknown]
  - Brain oedema [Recovered/Resolved]
  - Respiratory depression [Recovering/Resolving]
  - Areflexia [Recovered/Resolved]
